FAERS Safety Report 4546843-5 (Version None)
Quarter: 2005Q1

REPORT INFORMATION
  Report Type: 
  Country: None (occurrence: None)
  Receive Date: 20050105
  Receipt Date: 20041220
  Transmission Date: 20050727
  Serious: Yes (Other)
  Sender: FDA-Public Use
  Company Number: 168513

PATIENT
  Age: 56 Year
  Sex: Female

DRUGS (4)
  1. AVONEX [Suspect]
     Indication: MULTIPLE SCLEROSIS
     Dosage: 30 UG; QW; IM; SEE IMAGE
     Route: 030
     Dates: start: 19981029, end: 20000419
  2. AVONEX [Suspect]
     Indication: MULTIPLE SCLEROSIS
     Dosage: 30 UG; QW; IM; SEE IMAGE
     Route: 030
     Dates: start: 20020508
  3. DETRUSITOL [Concomitant]
  4. ZOLPIDEM TARTRATE [Concomitant]

REACTIONS (13)
  - ARTHRALGIA [None]
  - BILIARY CIRRHOSIS PRIMARY [None]
  - BLOOD IMMUNOGLOBULIN M INCREASED [None]
  - CHOLESTASIS [None]
  - HEPATOCELLULAR DAMAGE [None]
  - IMMUNOGLOBULINS INCREASED [None]
  - LYMPHADENOPATHY [None]
  - LYMPHOMA [None]
  - NERVOUS SYSTEM DISORDER [None]
  - PANCREATIC CARCINOMA [None]
  - PRURITUS [None]
  - REFLUX OESOPHAGITIS [None]
  - SICCA SYNDROME [None]
